FAERS Safety Report 9859134 (Version 1)
Quarter: 2014Q1

REPORT INFORMATION
  Report Type: Spontaneous
  Country: US (occurrence: US)
  Receive Date: 20140131
  Receipt Date: 20140131
  Transmission Date: 20141002
  Serious: Yes (Other)
  Sender: FDA-Public Use
  Company Number: US-MALLINCKRODT-T201401067

PATIENT
  Sex: Female
  Weight: 70.3 kg

DRUGS (3)
  1. GABLOFEN [Suspect]
     Indication: MUSCLE SPASTICITY
     Dosage: 1298 MCG/DAY
     Route: 037
  2. GABLOFEN [Suspect]
     Dosage: 700 MCG/DAY
     Route: 037
  3. GABLOFEN [Suspect]
     Dosage: 350 MCG/DAY
     Route: 037

REACTIONS (3)
  - Device failure [Unknown]
  - Implant site extravasation [Unknown]
  - Cerebrospinal fluid leakage [Unknown]
